FAERS Safety Report 8171977-6 (Version None)
Quarter: 2012Q1

REPORT INFORMATION
  Report Type: 
  Country: None (occurrence: None)
  Receive Date: 20120228
  Receipt Date: 20120222
  Transmission Date: 20120608
  Serious: Yes (Other)
  Sender: FDA-Public Use
  Company Number: TW-ABBOTT-12P-035-0907272-00

PATIENT
  Age: 40 Year
  Sex: Male

DRUGS (8)
  1. VALPROATE SODIUM [Suspect]
     Indication: IRRITABILITY
  2. ZOTEPINE [Suspect]
  3. ARIPIPRAZOLE [Concomitant]
     Indication: PSYCHOTIC DISORDER
  4. QUETIAPINE [Concomitant]
     Indication: PSYCHOTIC DISORDER
  5. ZOTEPINE [Suspect]
  6. ZOTEPINE [Suspect]
  7. ZOTEPINE [Suspect]
  8. ZOTEPINE [Suspect]
     Indication: PSYCHOTIC DISORDER

REACTIONS (1)
  - DELIRIUM [None]
